FAERS Safety Report 4708530-X (Version None)
Quarter: 2005Q3

REPORT INFORMATION
  Report Type: 
  Country: None (occurrence: None)
  Receive Date: 20050707
  Receipt Date: 20050509
  Transmission Date: 20060218
  Serious: Yes (Other)
  Sender: FDA-Public Use
  Company Number: PK-GLAXOSMITHKLINE-B0380854A

PATIENT
  Age: 43 Year
  Sex: Female
  Weight: 50 kg

DRUGS (2)
  1. LAMICTAL [Suspect]
     Indication: DEPRESSION
     Dosage: 50MG PER DAY
     Route: 048
     Dates: start: 20050418, end: 20050510
  2. CIPRALEX [Suspect]
     Indication: DEPRESSION
     Dosage: 10MG TWICE PER DAY
     Route: 048
     Dates: start: 20050418

REACTIONS (8)
  - ASTHENIA [None]
  - DIZZINESS [None]
  - DRUG HYPERSENSITIVITY [None]
  - HEADACHE [None]
  - HYPERTENSION [None]
  - INSOMNIA [None]
  - PALPITATIONS [None]
  - URTICARIA [None]
